FAERS Safety Report 8611527-0 (Version None)
Quarter: 2012Q3

REPORT INFORMATION
  Report Type: 
  Country: None (occurrence: None)
  Receive Date: 20120809
  Receipt Date: 20120726
  Transmission Date: 20120928
  Serious: Yes (Hospitalization, Disabling, Other)
  Sender: FDA-Public Use
  Company Number: HA12-224-AE

PATIENT
  Age: 73 Year
  Sex: Male
  Weight: 68.0396 kg

DRUGS (5)
  1. SULFAMETHOXAZOLE AND TRIMETHOPRIM [Suspect]
     Indication: PAIN IN EXTREMITY
     Dosage: 1 TABLET Q12E, ORAL
     Route: 048
     Dates: start: 20110311, end: 20110315
  2. CHOLESTEROL MEDICINE [Concomitant]
  3. COUMADIN [Concomitant]
  4. HIGH BLOOD PRESSURE MEDICATION [Concomitant]
  5. PRILOSEC [Concomitant]

REACTIONS (3)
  - LEG AMPUTATION [None]
  - WEIGHT DECREASED [None]
  - STEVENS-JOHNSON SYNDROME [None]
